FAERS Safety Report 5502096-2 (Version None)
Quarter: 2007Q4

REPORT INFORMATION
  Report Type: 
  Country: None (occurrence: None)
  Receive Date: 20071019
  Receipt Date: 20070118
  Transmission Date: 20080405
  Serious: Yes (Other)
  Sender: FDA-Public Use
  Company Number: PHEH2006US15052

PATIENT
  Sex: Female

DRUGS (16)
  1. ZOMETA [Suspect]
     Indication: BONE DENSITY DECREASED
     Dosage: 4 MG YEARLY, INTRAVENOUS
     Route: 042
     Dates: start: 20030101, end: 20060501
  2. HYDROCHLOROTHIAZIDE (HYDROCHOROTHIAZIDE) [Concomitant]
  3. TOPROL-XL [Concomitant]
  4. CALCIUM (CALCIUM) [Concomitant]
  5. MICARDIS [Concomitant]
  6. DETROL [Concomitant]
  7. LEVOTHYROXINE SODIUM [Concomitant]
  8. ASPIRIN [Concomitant]
  9. FLONASE [Concomitant]
  10. AM LACTIN (AMMONIUM LACTATE) [Concomitant]
  11. GLUCOSAMINE (GLUCOSAMINE) [Concomitant]
  12. CHONDROITIN A (CHLONDROITIN SULFATE SODIUM) [Concomitant]
  13. SIMVASTATIN [Concomitant]
  14. MULTI-VIT (VITAMINS NOS) [Concomitant]
  15. BENICAR [Concomitant]
  16. TRIAMCINOLONE ACETONIDE [Concomitant]

REACTIONS (4)
  - BLOOD CREATININE INCREASED [None]
  - BLOOD UREA INCREASED [None]
  - HYPERTENSION [None]
  - RENAL FAILURE ACUTE [None]
